FAERS Safety Report 12780664 (Version 1)
Quarter: 2016Q3

REPORT INFORMATION
  Report Type: Report from Study
  Country: HU (occurrence: HU)
  Receive Date: 20160926
  Receipt Date: 20160926
  Transmission Date: 20161109
  Serious: Yes (Other)
  Sender: FDA-Public Use
  Company Number: HU-BIOGEN-2016BI00282154

PATIENT
  Age: 47 Year
  Sex: Female

DRUGS (1)
  1. AVONEX [Suspect]
     Active Substance: INTERFERON BETA-1A
     Indication: MULTIPLE SCLEROSIS
     Route: 030
     Dates: start: 20131127, end: 20150128

REACTIONS (1)
  - Multiple sclerosis relapse [Recovered/Resolved]

NARRATIVE: CASE EVENT DATE: 20141126
